FAERS Safety Report 7299037-7 (Version None)
Quarter: 2011Q1

REPORT INFORMATION
  Report Type: 
  Country: None (occurrence: None)
  Receive Date: 20110217
  Receipt Date: 20100428
  Transmission Date: 20110831
  Serious: No
  Sender: FDA-Public Use
  Company Number: US-PFIZER INC-2010043310

PATIENT
  Sex: Female
  Weight: 64.853 kg

DRUGS (2)
  1. XALATAN [Suspect]
     Indication: GLAUCOMA
     Dosage: ONE DROP IN EACH EYE ONCE A DAY
     Dates: start: 20100317
  2. WARFARIN [Concomitant]
     Indication: HEART RATE IRREGULAR
     Dosage: UNK

REACTIONS (2)
  - INSOMNIA [None]
  - ANXIETY [None]
